FAERS Safety Report 23681687 (Version 1)
Quarter: 2024Q1

REPORT INFORMATION
  Report Type: Spontaneous
  Country: RU (occurrence: None)
  Receive Date: 20240328
  Receipt Date: 20240328
  Transmission Date: 20240410
  Serious: Yes (Other)
  Sender: FDA-Public Use
  Company Number: RU-ROCHE-3530992

PATIENT
  Sex: Female
  Weight: 73 kg

DRUGS (3)
  1. TRASTUZUMAB [Suspect]
     Active Substance: TRASTUZUMAB
     Indication: Breast cancer stage III
     Dosage: 8 MG/KG (LOADING DOSE)
     Route: 041
     Dates: start: 20200312, end: 20210224
  2. PERTUZUMAB [Suspect]
     Active Substance: PERTUZUMAB
     Indication: Breast cancer stage III
     Route: 041
     Dates: start: 20210318, end: 20220627
  3. DOCETAXEL [Suspect]
     Active Substance: DOCETAXEL\DOCETAXEL ANHYDROUS
     Indication: Breast cancer stage III
     Route: 065

REACTIONS (6)
  - Aortic arteriosclerosis [Unknown]
  - Pulmonary fibrosis [Unknown]
  - Fibrosis [Unknown]
  - Chronic sinusitis [Unknown]
  - Gallbladder disorder [Unknown]
  - Uterine leiomyoma [Unknown]
